FAERS Safety Report 10971290 (Version 1)
Quarter: 2015Q1

REPORT INFORMATION
  Report Type: Spontaneous
  Country: US (occurrence: US)
  Receive Date: 20150331
  Receipt Date: 20150331
  Transmission Date: 20150721
  Serious: Yes (Life-Threatening, Hospitalization)
  Sender: FDA-Public Use
  Company Number: US-PFIZER INC-9833460

PATIENT
  Age: 36 Year
  Sex: Female
  Weight: 81.19 kg

DRUGS (8)
  1. SINEQUAN [Suspect]
     Active Substance: DOXEPIN HYDROCHLORIDE
     Indication: ADJUSTMENT DISORDER
     Dosage: DAILY
     Route: 048
     Dates: start: 19980902, end: 19980914
  2. XANAX [Suspect]
     Active Substance: ALPRAZOLAM
     Indication: ADJUSTMENT DISORDER
     Dosage: TID
     Route: 048
     Dates: start: 19980902, end: 19980914
  3. MOTRIN [Concomitant]
     Active Substance: IBUPROFEN
     Route: 048
     Dates: start: 19980902, end: 19980914
  4. XANAX [Suspect]
     Active Substance: ALPRAZOLAM
     Dosage: 105 DF, UNK
     Route: 048
     Dates: start: 19980914, end: 19980914
  5. SINEQUAN [Suspect]
     Active Substance: DOXEPIN HYDROCHLORIDE
     Dosage: UNK
     Route: 048
     Dates: start: 19980914, end: 19980914
  6. VISTARIL [Concomitant]
     Active Substance: HYDROXYZINE PAMOATE
     Route: 048
     Dates: start: 19980902, end: 19980914
  7. TYLENOL [Concomitant]
     Active Substance: ACETAMINOPHEN
     Route: 048
     Dates: start: 19980902, end: 19980914
  8. IBUPROFEN. [Concomitant]
     Active Substance: IBUPROFEN
     Dosage: UNK

REACTIONS (11)
  - Intentional overdose [Unknown]
  - Suicide attempt [Unknown]
  - Liver function test abnormal [Unknown]
  - Coma [Unknown]
  - Electrocardiogram QRS complex abnormal [Unknown]
  - Electrocardiogram T wave abnormal [Unknown]
  - Hypoxia [Unknown]
  - Hypotension [Unknown]
  - Bundle branch block right [Unknown]
  - Sinus tachycardia [Unknown]
  - Blood glucose increased [Unknown]

NARRATIVE: CASE EVENT DATE: 19980914
